APPROVED DRUG PRODUCT: TRIAMCINOLONE ACETONIDE
Active Ingredient: TRIAMCINOLONE ACETONIDE
Strength: 0.025%
Dosage Form/Route: LOTION;TOPICAL
Application: A087191 | Product #001
Applicant: ALPHARMA US PHARMACEUTICALS DIVISION
Approved: Sep 8, 1982 | RLD: No | RS: No | Type: DISCN